FAERS Safety Report 4964416-7 (Version None)
Quarter: 2006Q2

REPORT INFORMATION
  Report Type: 
  Country: None (occurrence: None)
  Receive Date: 20060406
  Receipt Date: 20060330
  Transmission Date: 20061013
  Serious: Yes (Hospitalization)
  Sender: FDA-Public Use
  Company Number: 2006CG00606

PATIENT
  Age: 68 Year
  Sex: Female
  Weight: 69 kg

DRUGS (10)
  1. MOPRAL [Suspect]
     Route: 048
  2. LOXEN [Suspect]
     Route: 048
  3. HYPERIUM [Suspect]
     Route: 048
  4. SIFROL [Suspect]
     Dates: start: 20060120
  5. COZAAR [Suspect]
     Route: 048
  6. NEURONTIN [Suspect]
     Route: 048
     Dates: start: 20050101
  7. SINEMET CR [Concomitant]
  8. MODOPAR [Concomitant]
     Dosage: 500 + 125 MG DAILY
  9. LASILIX [Concomitant]
  10. IMUREL [Concomitant]

REACTIONS (3)
  - FACE OEDEMA [None]
  - OEDEMA PERIPHERAL [None]
  - WEIGHT INCREASED [None]
